FAERS Safety Report 5292408-X (Version None)
Quarter: 2007Q2

REPORT INFORMATION
  Report Type: 
  Country: None (occurrence: None)
  Receive Date: 20070410
  Receipt Date: 20070402
  Transmission Date: 20071010
  Serious: Yes (Other)
  Sender: FDA-Public Use
  Company Number: FR-PFIZER INC-2007026605

PATIENT
  Sex: Female

DRUGS (3)
  1. ZOLOFT [Suspect]
  2. HYDROXYZINE [Concomitant]
  3. BROMAZEPAM [Concomitant]

REACTIONS (3)
  - DISINHIBITION [None]
  - GAMMA-GLUTAMYLTRANSFERASE INCREASED [None]
  - TRANSAMINASES INCREASED [None]
